FAERS Safety Report 6638667-X (Version None)
Quarter: 2010Q1

REPORT INFORMATION
  Report Type: 
  Country: None (occurrence: None)
  Receive Date: 20100316
  Receipt Date: 20100316
  Transmission Date: 20100710
  Serious: Yes (Other)
  Sender: FDA-Public Use
  Company Number: None

PATIENT
  Sex: Female
  Weight: 90.7194 kg

DRUGS (2)
  1. OMNARIS [Suspect]
     Indication: NASAL CONGESTION
     Dosage: 2 METERED SPRAYS ONCE A DAY NASAL
     Route: 045
     Dates: start: 20100310, end: 20100310
  2. BENEDRIL [Concomitant]

REACTIONS (3)
  - BURNING SENSATION MUCOSAL [None]
  - HEADACHE [None]
  - SINUS CONGESTION [None]
